FAERS Safety Report 12687446 (Version 2)
Quarter: 2016Q3

REPORT INFORMATION
  Report Type: Spontaneous
  Country: US (occurrence: US)
  Receive Date: 20160826
  Receipt Date: 20160829
  Transmission Date: 20161109
  Serious: No
  Sender: FDA-Public Use
  Company Number: US-009507513-1608USA006038

PATIENT

DRUGS (1)
  1. BELSOMRA [Suspect]
     Active Substance: SUVOREXANT
     Dosage: 1 TABLET, ONCE DAILY 30 MINUTES PRIOR TO BEDTIME
     Route: 048

REACTIONS (4)
  - Eyelids pruritus [Unknown]
  - Pruritus generalised [Unknown]
  - Eyelid oedema [Unknown]
  - Product use issue [Unknown]
